FAERS Safety Report 8675801 (Version 2)
Quarter: 2012Q4

REPORT INFORMATION
  Report Type: 
  Country: DE (occurrence: DE)
  Receive Date: 20120720
  Receipt Date: 20120907
  Transmission Date: 20130627
  Serious: Yes (Death, Hospitalization)
  Sender: FDA-Public Use
  Company Number: DE-ROCHE-1089498

PATIENT
  Age: 81 Year
  Sex: Female
  Weight: 78 kg

DRUGS (8)
  1. RITUXIMAB [Suspect]
     Indication: PRODUCT USED FOR UNKNOWN INDICATION
     Route: 042
     Dates: start: 20071205
  2. LENDORMIN [Suspect]
     Indication: SLEEP DISORDER
     Route: 048
     Dates: start: 200908
  3. ATACAND [Suspect]
     Indication: HYPERTENSION
     Route: 048
     Dates: start: 2003
  4. FUROSEMIDE [Concomitant]
     Indication: HYPERTENSION
     Route: 048
     Dates: start: 2003
  5. NITRENDIPINE [Concomitant]
     Indication: HYPERTENSION
     Route: 048
     Dates: start: 20050311
  6. PREDNISOLON [Concomitant]
     Indication: RHEUMATOID ARTHRITIS
     Route: 048
     Dates: start: 20060302
  7. NEXIUM [Concomitant]
     Indication: PROPHYLAXIS AGAINST GASTROINTESTINAL ULCER
     Route: 048
     Dates: start: 200308
  8. DEKRISTOL [Concomitant]
     Indication: OSTEOPOROSIS
     Route: 048
     Dates: start: 200811

REACTIONS (6)
  - Cerebrovascular accident [Fatal]
  - Suicide attempt [Recovered/Resolved]
  - Aphasia [Unknown]
  - Hemiparesis [Unknown]
  - Pneumonia aspiration [Unknown]
  - Dysphagia [Unknown]
